FAERS Safety Report 9480296 (Version 1)
Quarter: 2013Q3

REPORT INFORMATION
  Report Type: Spontaneous
  Country: US (occurrence: US)
  Receive Date: 20130828
  Receipt Date: 20130828
  Transmission Date: 20140515
  Serious: Yes (Hospitalization, Other)
  Sender: FDA-Public Use
  Company Number: US-AMGEN-KDL099936

PATIENT
  Age: 77 Year
  Sex: Male

DRUGS (2)
  1. ENBREL [Suspect]
     Indication: RHEUMATOID ARTHRITIS
     Dosage: 25 MG, 2 TIMES/WK
     Route: 058
     Dates: start: 20021230
  2. METHOTREXATE [Concomitant]

REACTIONS (7)
  - Hip fracture [Unknown]
  - Tremor [Unknown]
  - Dysarthria [Unknown]
  - Drooling [Unknown]
  - Pyrexia [Unknown]
  - Productive cough [Unknown]
  - Urine output decreased [Unknown]
